FAERS Safety Report 8984227 (Version 1)
Quarter: 2012Q4

REPORT INFORMATION
  Report Type: Spontaneous
  Country: GB (occurrence: None)
  Receive Date: 20121214
  Receipt Date: 20121214
  Transmission Date: 20130627
  Serious: Yes (Disabling)
  Sender: FDA-Public Use
  Company Number: 2012-00527

PATIENT
  Age: 45 Year
  Sex: Female

DRUGS (2)
  1. LEVETIRACETAM (UNKNOWN) [Suspect]
     Indication: DRUG USE FOR UNKNOWN INDICATION
     Route: 048
     Dates: start: 20120118, end: 20120224
  2. LEVETIRACETAM [Suspect]
     Dosage: 1 Dosage forms (1 Dosage forms, 1 in 1 D), Oral
     Route: 048
     Dates: start: 20120118, end: 20120224

REACTIONS (1)
  - Convulsion [None]
